FAERS Safety Report 20742000 (Version 2)
Quarter: 2022Q2

REPORT INFORMATION
  Report Type: Spontaneous
  Country: LT (occurrence: LT)
  Receive Date: 20220423
  Receipt Date: 20220525
  Transmission Date: 20220721
  Serious: Yes (Hospitalization, Other)
  Sender: FDA-Public Use
  Company Number: LT-TEVA-2022-LT-2001240

PATIENT
  Age: 56 Year
  Sex: Male

DRUGS (9)
  1. MESALAMINE [Suspect]
     Active Substance: MESALAMINE
     Indication: Colitis ulcerative
     Dosage: 4 GRAM, QD
     Route: 065
  2. MESALAMINE [Suspect]
     Active Substance: MESALAMINE
     Dosage: 2 GRAM, QD
     Route: 065
  3. NEBIVOLOL [Suspect]
     Active Substance: NEBIVOLOL
     Indication: Hypertension
     Dosage: 5 GRAM, QD
     Route: 065
  4. NEBIVOLOL [Suspect]
     Active Substance: NEBIVOLOL
     Dosage: 5 MILLIGRAM, QD
     Route: 065
  5. AMLODIPINE\HYDROCHLOROTHIAZIDE\OLMESARTAN [Suspect]
     Active Substance: AMLODIPINE\HYDROCHLOROTHIAZIDE\OLMESARTAN
     Indication: Hypertension
     Dosage: UNK UNK, QD
     Route: 065
  6. VERAPAMIL [Suspect]
     Active Substance: VERAPAMIL HYDROCHLORIDE
     Indication: Hypertension
     Dosage: 240 MILLIGRAM, QD
     Route: 065
  7. OLMESARTAN [Suspect]
     Active Substance: OLMESARTAN
     Indication: Hypertension
     Dosage: 20 MILLIGRAM, QD
     Route: 065
  8. OLMESARTAN [Suspect]
     Active Substance: OLMESARTAN
     Dosage: 5 MILLIGRAM, QD
     Route: 065
  9. OLMESARTAN [Suspect]
     Active Substance: OLMESARTAN
     Dosage: 12.5 MILLIGRAM, QD
     Route: 065

REACTIONS (10)
  - Tubulointerstitial nephritis [Recovered/Resolved]
  - Acute kidney injury [Recovering/Resolving]
  - Renal impairment [Recovering/Resolving]
  - Nephropathy toxic [Recovering/Resolving]
  - Drug interaction [Recovered/Resolved]
  - Labelled drug-disease interaction issue [Recovered/Resolved]
  - Contraindicated product administered [Recovered/Resolved]
  - Asthenia [Recovering/Resolving]
  - Pyrexia [Recovering/Resolving]
  - Anuria [Recovering/Resolving]
